FAERS Safety Report 5055243-3 (Version None)
Quarter: 2006Q3

REPORT INFORMATION
  Report Type: 
  Country: None (occurrence: None)
  Receive Date: 20060714
  Receipt Date: 20060627
  Transmission Date: 20061208
  Serious: Yes (Hospitalization)
  Sender: FDA-Public Use
  Company Number: 2006081807

PATIENT
  Age: 77 Year
  Sex: Male

DRUGS (5)
  1. TAHOR                                 (ATORVASTATIN) [Suspect]
     Dosage: ORAL
     Route: 048
  2. WARFARIN SODIUM [Suspect]
     Dosage: 2 MG, ORAL
     Route: 048
     Dates: end: 20060521
  3. PIRIBEDIL [Concomitant]
  4. ZOPICLONE [Concomitant]
  5. OXAZEPAM [Concomitant]

REACTIONS (4)
  - DRUG INTERACTION [None]
  - HAEMORRHAGIC STROKE [None]
  - INTERNATIONAL NORMALISED RATIO INCREASED [None]
  - SUBDURAL HAEMORRHAGE [None]
